FAERS Safety Report 7577437-5 (Version None)
Quarter: 2011Q2

REPORT INFORMATION
  Report Type: 
  Country: None (occurrence: None)
  Receive Date: 20110628
  Receipt Date: 20110201
  Transmission Date: 20111010
  Serious: Yes (Hospitalization, Other)
  Sender: FDA-Public Use
  Company Number: US-BAYER-201016021NA

PATIENT
  Age: 36 Year
  Sex: Female
  Weight: 113.64 kg

DRUGS (8)
  1. YASMIN [Suspect]
     Indication: PRODUCT USED FOR UNKNOWN INDICATION
     Dosage: UNK UNK, UNK
     Route: 048
     Dates: start: 20060101, end: 20060426
  2. SYNTHROID [Concomitant]
     Dosage: 0.075 MG, QD
  3. FERROUS SULFATE TAB [Concomitant]
  4. LEVOTHYROXINE SODIUM [Concomitant]
     Dosage: UNK
     Dates: start: 20060101
  5. LUPRON [Concomitant]
  6. FEOSOL [Concomitant]
     Dosage: 325 MG, QD
  7. YAZ [Suspect]
     Indication: PRODUCT USED FOR UNKNOWN INDICATION
     Route: 048
  8. DARVOCET-N 50 [Concomitant]
     Dosage: UNK UNK, PRN

REACTIONS (4)
  - PULMONARY EMBOLISM [None]
  - GALLBLADDER INJURY [None]
  - INJURY [None]
  - CHOLECYSTITIS CHRONIC [None]
